FAERS Safety Report 10462368 (Version 1)
Quarter: 2014Q3

REPORT INFORMATION
  Report Type: Spontaneous
  Country: BR (occurrence: None)
  Receive Date: 20140911
  Receipt Date: 20140911
  Transmission Date: 20150326
  Serious: Yes (Other)
  Sender: FDA-Public Use
  Company Number: GAM-326-13-BR

PATIENT
  Age: 22 Year
  Sex: Female

DRUGS (10)
  1. FORMOTEROL [Concomitant]
     Active Substance: FORMOTEROL
  2. OCTAGAM IMMUNE GLOBULIN (HUMAN) [Suspect]
     Active Substance: HUMAN IMMUNOGLOBULIN G
     Indication: IMMUNODEFICIENCY COMMON VARIABLE
     Dosage: 1X  1/D
     Route: 042
     Dates: start: 20131015, end: 20131015
  3. LEVOFLOXACIN [Concomitant]
     Active Substance: LEVOFLOXACIN
  4. SODIUM CHLORIDE. [Concomitant]
     Active Substance: SODIUM CHLORIDE
  5. SALBUTAMOL [Concomitant]
     Active Substance: ALBUTEROL
  6. AZITHROMYCIN [Concomitant]
     Active Substance: AZITHROMYCIN ANHYDROUS
  7. LORATADINE. [Concomitant]
     Active Substance: LORATADINE
  8. OMEPRAZOLE. [Concomitant]
     Active Substance: OMEPRAZOLE
  9. BUDESONIDE. [Concomitant]
     Active Substance: BUDESONIDE
  10. PARACETAMOL [Concomitant]
     Active Substance: ACETAMINOPHEN

REACTIONS (5)
  - Dyspnoea [None]
  - Suffocation feeling [None]
  - Cough [None]
  - Chest pain [None]
  - Respiratory distress [None]

NARRATIVE: CASE EVENT DATE: 20131015
